FAERS Safety Report 9718828 (Version 1)
Quarter: 2013Q4

REPORT INFORMATION
  Report Type: Spontaneous
  Country: US (occurrence: None)
  Receive Date: 20131125
  Receipt Date: 20131125
  Transmission Date: 20140711
  Serious: Yes (Hospitalization)
  Sender: FDA-Public Use
  Company Number: 2013P1021057

PATIENT
  Age: 79 Year
  Sex: Female

DRUGS (6)
  1. DONEPEZIL [Suspect]
     Indication: DEPRESSION
  2. DONEPEZIL [Suspect]
     Indication: ANXIETY
  3. MIRTAZAPINE [Suspect]
  4. MIRTAZAPINE [Suspect]
     Indication: ANXIETY
  5. ESZOPICLONE [Suspect]
  6. ESZOPICLONE [Suspect]
     Indication: ANXIETY

REACTIONS (4)
  - Convulsion [None]
  - Confusional state [None]
  - Agitation [None]
  - Psychotic disorder [None]
